FAERS Safety Report 18249046 (Version 2)
Quarter: 2020Q4

REPORT INFORMATION
  Report Type: Spontaneous
  Country: US (occurrence: US)
  Receive Date: 20200909
  Receipt Date: 20201210
  Transmission Date: 20210113
  Serious: No
  Sender: FDA-Public Use
  Company Number: US-PERRIGO-20US011839

PATIENT
  Age: 47 Year
  Sex: Female
  Weight: 90.7 kg

DRUGS (2)
  1. ALBUTEROL SULFATE. [Suspect]
     Active Substance: ALBUTEROL SULFATE
     Indication: ASTHMA
     Dosage: 90 TO 360 MCG, PRN
     Route: 055
     Dates: start: 202008, end: 202008
  2. FLOVENT [Concomitant]
     Active Substance: FLUTICASONE PROPIONATE
     Indication: ASTHMA
     Dosage: UNK
     Route: 055

REACTIONS (2)
  - Drug effect less than expected [Unknown]
  - Incorrect dose administered [Recovered/Resolved]

NARRATIVE: CASE EVENT DATE: 202008
